FAERS Safety Report 7881697-0 (Version None)
Quarter: 2011Q4

REPORT INFORMATION
  Report Type: 
  Country: None (occurrence: None)
  Receive Date: 20111101
  Receipt Date: 20110524
  Transmission Date: 20120403
  Serious: No
  Sender: FDA-Public Use
  Company Number: US-AMGEN-USASP2011026918

PATIENT
  Sex: Male

DRUGS (11)
  1. AMBIEN CR [Concomitant]
     Dosage: 12.5 MG, UNK
  2. LIPITOR [Concomitant]
     Dosage: 40 MG, UNK
  3. CLOBETASOL [Concomitant]
     Dosage: 0.05 %, UNK
  4. TRIAMCINOLONE [Concomitant]
     Dosage: 0.1 %, UNK
  5. FLOVENT [Concomitant]
     Dosage: 220 MUG, UNK
  6. ENBREL [Suspect]
     Indication: PRODUCT USED FOR UNKNOWN INDICATION
     Dosage: 50 MG, 2 TIMES/WK
  7. AZITHROMYCIN [Concomitant]
     Dosage: 500 MG, UNK
  8. FOLIC ACID [Concomitant]
     Dosage: 1 MG, UNK
  9. HYDROCHLOROTH [Concomitant]
     Dosage: 12.5 MG, UNK
  10. PAROXETINE HCL [Concomitant]
     Dosage: 200 MG, UNK
  11. LISINOPRIL [Concomitant]
     Dosage: 10 MG, UNK

REACTIONS (1)
  - ARTHRALGIA [None]
